FAERS Safety Report 23910330 (Version 1)
Quarter: 2024Q2

REPORT INFORMATION
  Report Type: Spontaneous
  Country: US (occurrence: US)
  Receive Date: 20240528
  Receipt Date: 20240528
  Transmission Date: 20240715
  Serious: Yes (Hospitalization)
  Sender: FDA-Public Use
  Company Number: US-JNJFOC-20240565683

PATIENT
  Age: 30 Year
  Sex: Male

DRUGS (1)
  1. TYLENOL [Suspect]
     Active Substance: ACETAMINOPHEN
     Indication: Product used for unknown indication
     Route: 065

REACTIONS (8)
  - Hyperammonaemia [Unknown]
  - Anuria [Unknown]
  - Blood albumin increased [Unknown]
  - Blood creatinine increased [Unknown]
  - Acute hepatic failure [Unknown]
  - Overdose [Unknown]
  - Metabolic acidosis [Unknown]
  - International normalised ratio increased [Unknown]
